FAERS Safety Report 9100225 (Version 1)
Quarter: 2013Q1

REPORT INFORMATION
  Report Type: Spontaneous
  Country: US (occurrence: US)
  Receive Date: 20130215
  Receipt Date: 20130215
  Transmission Date: 20140127
  Serious: No
  Sender: FDA-Public Use
  Company Number: US-ROCHE-1189055

PATIENT
  Age: 10 Year
  Sex: Male

DRUGS (4)
  1. NUTROPIN AQ [Suspect]
     Indication: PRADER-WILLI SYNDROME
     Route: 058
     Dates: start: 201206, end: 201212
  2. NUTROPIN AQ [Suspect]
     Route: 058
     Dates: start: 201301, end: 20130131
  3. NUTROPIN AQ [Suspect]
     Route: 058
     Dates: end: 201302
  4. NUTROPIN [Suspect]
     Indication: PRADER-WILLI SYNDROME
     Route: 065
     Dates: start: 2008, end: 201206

REACTIONS (4)
  - Tongue disorder [Recovered/Resolved]
  - Headache [Recovered/Resolved]
  - Staring [Unknown]
  - Convulsion [Recovered/Resolved]
